FAERS Safety Report 22225609 (Version 16)
Quarter: 2023Q4

REPORT INFORMATION
  Report Type: Report from Study
  Country: ES (occurrence: None)
  Receive Date: 20230418
  Receipt Date: 20231003
  Transmission Date: 20240110
  Serious: Yes (Hospitalization)
  Sender: FDA-Public Use
  Company Number: ES-Eisai Medical Research-EC-2023-138296

PATIENT
  Age: 48 Year
  Sex: Male
  Weight: 61 kg

DRUGS (14)
  1. LENVATINIB [Suspect]
     Active Substance: LENVATINIB
     Indication: Renal cell carcinoma
     Route: 048
     Dates: start: 20210421, end: 20230404
  2. PEMBROLIZUMAB [Suspect]
     Active Substance: PEMBROLIZUMAB
     Indication: Renal cell carcinoma
     Route: 041
     Dates: start: 20210421, end: 20230405
  3. METAMIZOLE MAGNESIUM [Concomitant]
     Active Substance: METAMIZOLE MAGNESIUM
     Dates: start: 20210415
  4. IRBESARTAN [Concomitant]
     Active Substance: IRBESARTAN
     Dates: start: 20211210, end: 20230426
  5. LEXXEMA [Concomitant]
     Dates: start: 20220204, end: 20230503
  6. EUTHYROX [Concomitant]
     Active Substance: LEVOTHYROXINE SODIUM
     Dates: start: 20220713, end: 20230425
  7. HYDROCORTISONE [Concomitant]
     Active Substance: HYDROCORTISONE
     Dates: start: 20220727
  8. CALCIUM CARBONATE\CHOLECALCIFEROL [Concomitant]
     Active Substance: CALCIUM CARBONATE\CHOLECALCIFEROL
     Dates: start: 20221207
  9. CODEINE PHOSPHATE [Concomitant]
     Active Substance: CODEINE PHOSPHATE
     Dates: start: 20221212, end: 20230407
  10. AMOXICILLIN [Concomitant]
     Active Substance: AMOXICILLIN
     Dates: start: 20230314, end: 20230410
  11. METRONIDAZOLE [Concomitant]
     Active Substance: METRONIDAZOLE
     Dates: start: 20230314, end: 20230410
  12. RINOBANEDIF [ANTAZOLINE;BACITRACIN ZINC;CHLOROBUTANOL;CINEOLE;MELALEUC [Concomitant]
     Dates: start: 20230324, end: 20230410
  13. ALUNEB [Concomitant]
     Dates: start: 20230324, end: 20230410
  14. ALUNEB HIPERTONICO [Concomitant]
     Dates: start: 20230324, end: 20230410

REACTIONS (2)
  - Cerebrovascular accident [Recovered/Resolved with Sequelae]
  - Vasculitis [Recovered/Resolved]

NARRATIVE: CASE EVENT DATE: 20230408
